FAERS Safety Report 10070837 (Version 1)
Quarter: 2014Q2

REPORT INFORMATION
  Report Type: Spontaneous
  Country: FR (occurrence: FR)
  Receive Date: 20140410
  Receipt Date: 20140410
  Transmission Date: 20141212
  Serious: Yes (Hospitalization)
  Sender: FDA-Public Use
  Company Number: FR-BRISTOL-MYERS SQUIBB COMPANY-20587937

PATIENT
  Age: 30 Year
  Sex: Male

DRUGS (2)
  1. ABILIFY TABS [Suspect]
     Indication: PSYCHOTIC DISORDER
     Route: 048
     Dates: start: 20140129, end: 20140305
  2. ANAFRANIL [Suspect]
     Indication: PSYCHOTIC DISORDER
     Route: 048
     Dates: start: 20140129, end: 20140305

REACTIONS (3)
  - Rash [Not Recovered/Not Resolved]
  - Eosinophil count increased [Not Recovered/Not Resolved]
  - Off label use [Not Recovered/Not Resolved]
